FAERS Safety Report 4528050-5 (Version None)
Quarter: 2004Q4

REPORT INFORMATION
  Report Type: 
  Country: None (occurrence: None)
  Receive Date: 20041123
  Receipt Date: 20040506
  Transmission Date: 20050328
  Serious: No
  Sender: FDA-Public Use
  Company Number: 2004031381

PATIENT
  Age: 42 Year
  Sex: Male

DRUGS (2)
  1. LIPITOR [Suspect]
     Indication: ILL-DEFINED DISORDER
  2. RAMIPRIL [Concomitant]

REACTIONS (4)
  - ATRIAL FIBRILLATION [None]
  - BLOOD CREATINE PHOSPHOKINASE INCREASED [None]
  - ECHOCARDIOGRAM ABNORMAL [None]
  - HEART RATE INCREASED [None]
